FAERS Safety Report 6790190-8 (Version None)
Quarter: 2010Q2

REPORT INFORMATION
  Report Type: 
  Country: None (occurrence: None)
  Receive Date: 20100624
  Receipt Date: 20100619
  Transmission Date: 20101027
  Serious: Yes (Life-Threatening)
  Sender: FDA-Public Use
  Company Number: IT-CELGENEUS-083-21880-10062009

PATIENT
  Sex: Male

DRUGS (4)
  1. REVLIMID [Suspect]
     Indication: MULTIPLE MYELOMA
     Route: 048
     Dates: start: 20100420, end: 20100528
  2. CHLORHYDRATE TRAMADOL [Concomitant]
     Indication: DRUG USE FOR UNKNOWN INDICATION
     Route: 065
  3. SOLDESAM [Concomitant]
     Indication: IMMUNOSUPPRESSION
     Route: 048
  4. SOLDESAM [Concomitant]
     Indication: MULTIPLE MYELOMA

REACTIONS (2)
  - LUNG INFILTRATION [None]
  - URTICARIA [None]
